FAERS Safety Report 24453238 (Version 2)
Quarter: 2024Q4

REPORT INFORMATION
  Report Type: Report from Study
  Country: US (occurrence: US)
  Receive Date: 20241017
  Receipt Date: 20241018
  Transmission Date: 20250115
  Serious: No
  Sender: ROCHE
  Company Number: US-ROCHE-3061996

PATIENT
  Age: 55 Year
  Sex: Male

DRUGS (14)
  1. RITUXAN [Suspect]
     Active Substance: RITUXIMAB
     Indication: Immune thrombocytopenia
     Dosage: ONE TREATMENT WEEKLY AND 4 WEEKS TOTAL?DATE OF SERVICE: 13/04/2022
     Route: 065
     Dates: start: 20220324
  2. SODIUM CHLORIDE [Concomitant]
     Active Substance: SODIUM CHLORIDE
  3. ACETAMINOPHEN [Concomitant]
     Active Substance: ACETAMINOPHEN
  4. ASPIRIN [Concomitant]
     Active Substance: ASPIRIN
  5. DIPHENHYDRAMINE [Concomitant]
     Active Substance: DIPHENHYDRAMINE
  6. ENALPRIL [Concomitant]
  7. PEPCID [Concomitant]
     Active Substance: FAMOTIDINE
  8. FAMOTIDINE [Concomitant]
     Active Substance: FAMOTIDINE
  9. FLUCONAZOLE [Concomitant]
     Active Substance: FLUCONAZOLE
  10. FOSTAMATINIB [Concomitant]
     Active Substance: FOSTAMATINIB
  11. GEMFIBROZIL [Concomitant]
     Active Substance: GEMFIBROZIL
  12. GLIPIZIDE [Concomitant]
     Active Substance: GLIPIZIDE
  13. HEPARIN [Concomitant]
     Active Substance: HEPARIN SODIUM
  14. LIDOCAINE [Concomitant]
     Active Substance: LIDOCAINE

REACTIONS (2)
  - Off label use [Unknown]
  - No adverse event [Unknown]
